FAERS Safety Report 4371015-7 (Version None)
Quarter: 2004Q2

REPORT INFORMATION
  Report Type: 
  Country: None (occurrence: None)
  Receive Date: 20040601
  Receipt Date: 20040519
  Transmission Date: 20050107
  Serious: Yes (Disabling)
  Sender: FDA-Public Use
  Company Number: 200411739GDS

PATIENT
  Age: 54 Year
  Sex: Female
  Weight: 60 kg

DRUGS (6)
  1. AVELOX [Suspect]
     Indication: URINARY TRACT INFECTION
     Dosage: 400 MG, TOTAL DAILY, ORAL
     Route: 048
     Dates: start: 20040510, end: 20040514
  2. ALPRAZOLAM [Concomitant]
  3. STILNOCT [Concomitant]
  4. PATOZOL [Concomitant]
  5. EFFEXOR [Concomitant]
  6. MORPHIPHAR [Concomitant]

REACTIONS (7)
  - ARTHRITIS INFECTIVE [None]
  - DIFFICULTY IN WALKING [None]
  - ESCHERICHIA INFECTION [None]
  - JOINT SWELLING [None]
  - MYALGIA [None]
  - PYREXIA [None]
  - SYNOVITIS [None]
